FAERS Safety Report 21658174 (Version 1)
Quarter: 2022Q4

REPORT INFORMATION
  Report Type: Spontaneous
  Country: DE (occurrence: DE)
  Receive Date: 20221129
  Receipt Date: 20221129
  Transmission Date: 20230113
  Serious: Yes (Hospitalization)
  Sender: FDA-Public Use
  Company Number: None

PATIENT
  Age: 86 Year
  Sex: Female
  Weight: 60 kg

DRUGS (4)
  1. APIXABAN [Suspect]
     Active Substance: APIXABAN
     Indication: Product used for unknown indication
     Dosage: 5 MG, 1-0-1-0
  2. LEVOTHYROXINE SODIUM [Concomitant]
     Active Substance: LEVOTHYROXINE SODIUM
     Dosage: 0.1 MG, 1-0-0-0
  3. CANDESARTAN [Concomitant]
     Active Substance: CANDESARTAN
     Dosage: 8 MG, 1-0-0-0
  4. SIMVASTATIN [Concomitant]
     Active Substance: SIMVASTATIN
     Dosage: 40 MG, 0-0-1-0

REACTIONS (7)
  - Melaena [Unknown]
  - General physical health deterioration [Unknown]
  - Haematochezia [Unknown]
  - Anaemia [Unknown]
  - Muscular weakness [Unknown]
  - Gastrointestinal haemorrhage [Unknown]
  - Dyspnoea [Unknown]
